FAERS Safety Report 6014985-3 (Version None)
Quarter: 2008Q4

REPORT INFORMATION
  Report Type: 
  Country: None (occurrence: None)
  Receive Date: 20081219
  Receipt Date: 20081212
  Transmission Date: 20090506
  Serious: Yes (Other)
  Sender: FDA-Public Use
  Company Number: PHHO2008IT14120

PATIENT
  Sex: Male
  Weight: 57 kg

DRUGS (4)
  1. TASIGNA [Suspect]
     Indication: CHRONIC MYELOID LEUKAEMIA
     Dosage: 600MG
     Route: 048
     Dates: start: 20060326
  2. NOVONORM [Concomitant]
  3. ASPIRIN [Concomitant]
  4. SELEPARINA [Concomitant]

REACTIONS (6)
  - ARTERIAL STENT INSERTION [None]
  - DIABETIC VASCULAR DISORDER [None]
  - NECROSIS [None]
  - PERIPHERAL ARTERY ANGIOPLASTY [None]
  - THROMBOSIS [None]
  - TOE AMPUTATION [None]
